FAERS Safety Report 8457954-6 (Version None)
Quarter: 2012Q2

REPORT INFORMATION
  Report Type: 
  Country: None (occurrence: None)
  Receive Date: 20120622
  Receipt Date: 20120611
  Transmission Date: 20120825
  Serious: Yes (Other)
  Sender: FDA-Public Use
  Company Number: US-SANOFI-AVENTIS-2012SA041842

PATIENT
  Age: 70 Year
  Sex: Female

DRUGS (4)
  1. LANTUS [Suspect]
     Dosage: DOSE:24 UNIT(S)
     Route: 058
  2. HUMALOG [Concomitant]
  3. LANTUS [Suspect]
     Dosage: VIAL
     Route: 058
  4. SOLOSTAR [Suspect]

REACTIONS (2)
  - CORONARY ARTERY BYPASS [None]
  - CATARACT OPERATION [None]
